FAERS Safety Report 5777997-0 (Version None)
Quarter: 2008Q2

REPORT INFORMATION
  Report Type: 
  Country: None (occurrence: None)
  Receive Date: 20080619
  Receipt Date: 20080610
  Transmission Date: 20081010
  Serious: Yes (Hospitalization)
  Sender: FDA-Public Use
  Company Number: US-BAYER-200825631NA

PATIENT
  Age: 50 Year
  Sex: Male

DRUGS (14)
  1. CAMPATH [Suspect]
     Indication: LIVER TRANSPLANT
     Dosage: TOTAL DAILY DOSE: 30 MG
     Route: 042
     Dates: start: 20060424, end: 20060424
  2. CAMPATH [Suspect]
     Dosage: TOTAL DAILY DOSE: 30 MG
     Route: 042
     Dates: start: 20060428, end: 20060428
  3. TACROLIMUS [Suspect]
     Indication: LIVER TRANSPLANT
     Dosage: TOTAL DAILY DOSE: 3 MG
     Route: 048
     Dates: start: 20060424, end: 20080205
  4. TACROLIMUS [Suspect]
     Dosage: TOTAL DAILY DOSE: 15 MG
     Route: 048
     Dates: start: 20080206, end: 20080206
  5. MULTI-VITAMIN [Concomitant]
     Dates: start: 20060501
  6. CALCIUM WITH D [Concomitant]
     Dates: start: 20060501
  7. VALCYTE [Concomitant]
     Dates: start: 20060430
  8. PROTONIX [Concomitant]
     Dates: start: 20060513
  9. NORVASC [Concomitant]
     Dates: start: 20060616
  10. IMITREX [Concomitant]
     Dates: start: 20060719
  11. NEXIUM [Concomitant]
     Dates: start: 20060524
  12. TOPRAMAX [Concomitant]
     Dates: start: 20061001
  13. BACTRIM [Concomitant]
     Dates: start: 20060428
  14. CLOTRIMAZOLE TROCHE [Concomitant]
     Dates: start: 20060501

REACTIONS (1)
  - LIVER TRANSPLANT REJECTION [None]
